FAERS Safety Report 22381314 (Version 1)
Quarter: 2023Q2

REPORT INFORMATION
  Report Type: Spontaneous
  Country: AU (occurrence: AU)
  Receive Date: 20230530
  Receipt Date: 20230530
  Transmission Date: 20230722
  Serious: Yes (Other)
  Sender: FDA-Public Use
  Company Number: AU-GRIFOLS-BIG0023439

PATIENT
  Age: 46 Year
  Sex: Male
  Weight: 104 kg

DRUGS (6)
  1. FLEBOGAMMA DIF [Suspect]
     Active Substance: HUMAN IMMUNOGLOBULIN G
     Indication: Necrotising myositis
     Dosage: 50 GRAM, UNKNOWN
     Route: 042
     Dates: start: 20230504, end: 20230504
  2. FLEBOGAMMA DIF [Suspect]
     Active Substance: HUMAN IMMUNOGLOBULIN G
     Indication: Intentional product use issue
     Dosage: 50 GRAM, UNKNOWN
     Route: 042
     Dates: start: 20230504, end: 20230504
  3. FLEBOGAMMA DIF [Suspect]
     Active Substance: HUMAN IMMUNOGLOBULIN G
     Dosage: 50 GRAM, UNKNOWN
     Route: 042
     Dates: start: 20230504, end: 20230504
  4. LORATADINE [Concomitant]
     Active Substance: LORATADINE
     Indication: Premedication
     Dosage: 10 MILLIGRAM
  5. ACETAMINOPHEN [Concomitant]
     Active Substance: ACETAMINOPHEN
     Indication: Premedication
     Dosage: 1 GRAM
  6. METHYLPREDNISOLONE [Concomitant]
     Active Substance: METHYLPREDNISOLONE
     Indication: Premedication
     Dosage: 100 MILLIGRAM

REACTIONS (6)
  - Dizziness [Unknown]
  - Headache [Unknown]
  - Nausea [Recovered/Resolved]
  - Pruritus [Unknown]
  - Paraesthesia [Recovered/Resolved]
  - Abdominal pain [Recovered/Resolved]

NARRATIVE: CASE EVENT DATE: 20230504
